FAERS Safety Report 11086791 (Version 3)
Quarter: 2015Q4

REPORT INFORMATION
  Report Type: Spontaneous
  Country: MX (occurrence: MX)
  Receive Date: 20150504
  Receipt Date: 20151120
  Transmission Date: 20160304
  Serious: Yes (Other)
  Sender: FDA-Public Use
  Company Number: MX-SA-2015SA053315

PATIENT
  Age: 56 Year
  Sex: Male

DRUGS (6)
  1. FABRAZYME [Suspect]
     Active Substance: AGALSIDASE BETA
     Indication: FABRY^S DISEASE
     Route: 041
     Dates: start: 20150204
  2. CALCITRIOL. [Concomitant]
     Active Substance: CALCITRIOL
  3. LORATADINE. [Concomitant]
     Active Substance: LORATADINE
     Indication: PREMEDICATION
  4. ENALAPRIL [Concomitant]
     Active Substance: ENALAPRIL
  5. PARACETAMOL [Concomitant]
     Active Substance: ACETAMINOPHEN
     Indication: PREMEDICATION
  6. PRAVASTATIN [Concomitant]
     Active Substance: PRAVASTATIN\PRAVASTATIN SODIUM

REACTIONS (8)
  - Asthenia [Recovered/Resolved]
  - Bundle branch block left [Unknown]
  - Bradycardia [Recovered/Resolved]
  - Syncope [Unknown]
  - Dizziness [Recovered/Resolved]
  - Nausea [Unknown]
  - Bundle branch block right [Unknown]
  - Vomiting [Unknown]

NARRATIVE: CASE EVENT DATE: 20150422
